FAERS Safety Report 9765018 (Version 1)
Quarter: 2013Q4

REPORT INFORMATION
  Report Type: Spontaneous
  Country: GB (occurrence: IE)
  Receive Date: 20131217
  Receipt Date: 20131217
  Transmission Date: 20140711
  Serious: Yes (Life-Threatening, Hospitalization, Other)
  Sender: FDA-Public Use
  Company Number: GB-ELI_LILLY_AND_COMPANY-IE201312003524

PATIENT
  Age: 49 Year
  Sex: Female

DRUGS (4)
  1. EFIENT [Suspect]
     Indication: ACUTE MYOCARDIAL INFARCTION
     Dosage: 10 MG, UNKNOWN
     Route: 048
  2. EFIENT [Suspect]
     Indication: PERCUTANEOUS CORONARY INTERVENTION
  3. LIPTOR [Concomitant]
     Indication: ACUTE MYOCARDIAL INFARCTION
     Dosage: 18 MG, UNKNOWN
     Route: 048
     Dates: start: 201311
  4. LIPTOR [Concomitant]
     Indication: PERCUTANEOUS CORONARY INTERVENTION

REACTIONS (1)
  - Multi-organ failure [Not Recovered/Not Resolved]
